FAERS Safety Report 16422479 (Version 1)
Quarter: 2019Q2

REPORT INFORMATION
  Report Type: Spontaneous
  Country: JP (occurrence: JP)
  Receive Date: 20190612
  Receipt Date: 20190612
  Transmission Date: 20190711
  Serious: Yes (Hospitalization)
  Sender: FDA-Public Use
  Company Number: JP-BAUSCH-BL-2019-016904

PATIENT
  Age: 64 Year
  Sex: Female

DRUGS (1)
  1. MOVIPREP [Suspect]
     Active Substance: ASCORBIC ACID\POLYETHYLENE GLYCOL 3350\POTASSIUM CHLORIDE\SODIUM ASCORBATE\SODIUM CHLORIDE\SODIUM SULFATE
     Indication: PRODUCT USED FOR UNKNOWN INDICATION
     Dosage: 1 LITER MOVIPREP WITH 5 LITER WATER, UNKNOWN
     Route: 065

REACTIONS (3)
  - Hyponatraemia [Unknown]
  - Loss of consciousness [Unknown]
  - Water intoxication [Unknown]
